FAERS Safety Report 6401911-8 (Version None)
Quarter: 2009Q4

REPORT INFORMATION
  Report Type: 
  Country: None (occurrence: None)
  Receive Date: 20091015
  Receipt Date: 20091006
  Transmission Date: 20100525
  Serious: Yes (Hospitalization)
  Sender: FDA-Public Use
  Company Number: A0731279A

PATIENT
  Age: 67 Year
  Sex: Male
  Weight: 117.3 kg

DRUGS (5)
  1. AVANDIA [Suspect]
     Indication: TYPE 2 DIABETES MELLITUS
     Dosage: 6MG PER DAY
     Route: 048
     Dates: start: 20040101, end: 20070501
  2. GLUCOTROL [Concomitant]
     Dates: start: 19870101
  3. LISINOPRIL [Concomitant]
  4. LANTUS [Concomitant]
  5. DEMADEX [Concomitant]

REACTIONS (23)
  - ANEURYSM [None]
  - AORTIC CALCIFICATION [None]
  - ARTERIOSCLEROSIS CORONARY ARTERY [None]
  - ATRIAL FIBRILLATION [None]
  - ATRIOVENTRICULAR BLOCK FIRST DEGREE [None]
  - BUNDLE BRANCH BLOCK LEFT [None]
  - CARDIAC ARREST [None]
  - CARDIAC FAILURE CONGESTIVE [None]
  - CEREBROVASCULAR ACCIDENT [None]
  - ECONOMIC PROBLEM [None]
  - HEART INJURY [None]
  - HEPATIC FAILURE [None]
  - HYPERTENSIVE HEART DISEASE [None]
  - ISCHAEMIC CARDIOMYOPATHY [None]
  - LIVER INJURY [None]
  - MULTIPLE INJURIES [None]
  - MUSCULAR WEAKNESS [None]
  - MYOCARDIAL INFARCTION [None]
  - OEDEMA [None]
  - PAIN [None]
  - PERICARDIAL EFFUSION [None]
  - TRICUSPID VALVE INCOMPETENCE [None]
  - WEIGHT INCREASED [None]
